FAERS Safety Report 9061778 (Version 1)
Quarter: 2013Q1

REPORT INFORMATION
  Report Type: Spontaneous
  Country: US (occurrence: None)
  Receive Date: 20130122
  Receipt Date: 20130122
  Transmission Date: 20140127
  Serious: Yes (Death, Other)
  Sender: FDA-Public Use
  Company Number: 2013MA000234

PATIENT
  Age: 62 Year
  Sex: Female

DRUGS (4)
  1. KADIAN [Suspect]
     Indication: PRODUCT USED FOR UNKNOWN INDICATION
     Dosage: : UNK; PO  +  UNK
     Route: 048
  2. DOXEPIN [Suspect]
     Indication: PRODUCT USED FOR UNKNOWN INDICATION
     Dosage: ; UNK; PO  +  UNK
     Route: 048
  3. ETHANOL [Suspect]
     Indication: PRODUCT USED FOR UNKNOWN INDICATION
     Dosage: ; UNK; PO  +  UNK
     Route: 048
  4. FLUOXETINE [Suspect]
     Indication: PRODUCT USED FOR UNKNOWN INDICATION
     Dosage: ; UNK; PO + UNK
     Route: 048

REACTIONS (1)
  - Drug abuse [None]
